FAERS Safety Report 16124907 (Version 2)
Quarter: 2019Q2

REPORT INFORMATION
  Report Type: Spontaneous
  Country: US (occurrence: US)
  Receive Date: 20190327
  Receipt Date: 20190506
  Transmission Date: 20190711
  Serious: Yes (Hospitalization, Other)
  Sender: FDA-Public Use
  Company Number: PHHY2019US068992

PATIENT
  Age: 6 Year
  Sex: Female

DRUGS (7)
  1. 6-MERCAPTOPURINE MONOHYDRATE [Suspect]
     Active Substance: MERCAPTOPURINE
     Indication: ACUTE LYMPHOCYTIC LEUKAEMIA
     Dosage: 1.5 DF (TOTAL 75MG) MON TO THURS
     Route: 065
  2. 6-MERCAPTOPURINE MONOHYDRATE [Suspect]
     Active Substance: MERCAPTOPURINE
     Dosage: 1 DF,  (1 TAB (50MG) FRI-SUN)
     Route: 065
  3. DEXAMETHASONE. [Suspect]
     Active Substance: DEXAMETHASONE
     Indication: ACUTE LYMPHOCYTIC LEUKAEMIA
     Dosage: 3 MG, BID 5 DAYS A MONTH
     Route: 065
  4. DEXAMETHASONE. [Suspect]
     Active Substance: DEXAMETHASONE
     Dosage: 2.5 MG, BID
     Route: 065
  5. METHOTREXATE. [Suspect]
     Active Substance: METHOTREXATE
     Indication: ACUTE LYMPHOCYTIC LEUKAEMIA
     Dosage: 18.75 MG, QW
     Route: 048
     Dates: start: 201603
  6. URSODIOL. [Concomitant]
     Active Substance: URSODIOL
     Indication: PRODUCT USED FOR UNKNOWN INDICATION
     Dosage: 300 MG, QD
     Route: 065
  7. MIRALAX [Concomitant]
     Active Substance: POLYETHYLENE GLYCOL 3350
     Indication: PRODUCT USED FOR UNKNOWN INDICATION
     Dosage: 0.5 DF, (HALF CAPSULE)
     Route: 065

REACTIONS (17)
  - Rosacea [Recovering/Resolving]
  - Rhinorrhoea [Recovering/Resolving]
  - Cough [Unknown]
  - Rash erythematous [Recovering/Resolving]
  - Skin plaque [Recovering/Resolving]
  - Skin disorder [Recovering/Resolving]
  - Mouth ulceration [Recovering/Resolving]
  - Skin exfoliation [Recovering/Resolving]
  - Rash [Recovering/Resolving]
  - Scab [Recovering/Resolving]
  - Pain [Recovering/Resolving]
  - Papule [Recovering/Resolving]
  - Neutropenia [Unknown]
  - Anaemia [Unknown]
  - Oral mucosal eruption [Recovering/Resolving]
  - Erythema [Recovering/Resolving]
  - Demodicidosis [Unknown]

NARRATIVE: CASE EVENT DATE: 201808
